FAERS Safety Report 7808749-5 (Version None)
Quarter: 2011Q4

REPORT INFORMATION
  Report Type: 
  Country: None (occurrence: None)
  Receive Date: 20111012
  Receipt Date: 20111003
  Transmission Date: 20120403
  Serious: Yes (Other)
  Sender: FDA-Public Use
  Company Number: US-SANOFI-AVENTIS-2011SA065642

PATIENT
  Sex: Male

DRUGS (2)
  1. ELIGARD [Suspect]
     Route: 065
  2. ELIGARD [Suspect]
     Route: 065

REACTIONS (1)
  - STEVENS-JOHNSON SYNDROME [None]
